FAERS Safety Report 10644423 (Version 5)
Quarter: 2017Q1

REPORT INFORMATION
  Report Type: Report from Study
  Country: US (occurrence: US)
  Receive Date: 20141210
  Receipt Date: 20170214
  Transmission Date: 20170428
  Serious: Yes (Death, Disabling)
  Sender: FDA-Public Use
  Company Number: US-ACTELION-A-US2014-109120

PATIENT
  Age: 82 Year
  Sex: Female

DRUGS (14)
  1. ADCIRCA [Concomitant]
     Active Substance: TADALAFIL
  2. GABAPENTIN. [Concomitant]
     Active Substance: GABAPENTIN
  3. POTASSIUM [Concomitant]
     Active Substance: POTASSIUM
  4. CYMBALTA [Concomitant]
     Active Substance: DULOXETINE HYDROCHLORIDE
  5. MAGNESIUM [Concomitant]
     Active Substance: MAGNESIUM
  6. SYNTHROID [Concomitant]
     Active Substance: LEVOTHYROXINE SODIUM
  7. TORSEMIDE. [Concomitant]
     Active Substance: TORSEMIDE
  8. RENVELA [Concomitant]
     Active Substance: SEVELAMER CARBONATE
  9. METOLAZONE. [Concomitant]
     Active Substance: METOLAZONE
  10. LEVEMIR [Concomitant]
     Active Substance: INSULIN DETEMIR
  11. TRAJENTA [Concomitant]
     Active Substance: LINAGLIPTIN
  12. PRAMIPEXOLE. [Concomitant]
     Active Substance: PRAMIPEXOLE
  13. OPSUMIT [Suspect]
     Active Substance: MACITENTAN
     Indication: INTERSTITIAL LUNG DISEASE
     Dosage: 10 MG, QD
     Route: 048
     Dates: start: 20141030
  14. ASPIRIN. [Concomitant]
     Active Substance: ASPIRIN

REACTIONS (5)
  - Death [Fatal]
  - Rash pruritic [Not Recovered/Not Resolved]
  - Pruritus [Unknown]
  - Swelling [Unknown]
  - Dry skin [Unknown]

NARRATIVE: CASE EVENT DATE: 20141101
